FAERS Safety Report 18333402 (Version 1)
Quarter: 2020Q3

REPORT INFORMATION
  Report Type: Spontaneous
  Country: US (occurrence: US)
  Receive Date: 20200929
  Receipt Date: 20200929
  Transmission Date: 20201103
  Serious: No
  Sender: FDA-Public Use
  Company Number: None

PATIENT
  Age: 49 Year
  Sex: Female
  Weight: 90.72 kg

DRUGS (5)
  1. HYDROCHLONTHYOZIDE [Concomitant]
  2. METFORMIN HCL ER 750MG [Suspect]
     Active Substance: METFORMIN HYDROCHLORIDE
     Indication: TYPE 2 DIABETES MELLITUS
     Dosage: DOSE: 500 + 759 MG?          QUANTITY:1 DF DOSAGE FORM;?          ?
     Route: 048
     Dates: start: 20180308, end: 20200321
  3. METFORMIN [Suspect]
     Active Substance: METFORMIN HYDROCHLORIDE
  4. ECHINECIA [Concomitant]
  5. VITAMIN B [Concomitant]
     Active Substance: VITAMIN B

REACTIONS (6)
  - Arthralgia [None]
  - Bone pain [None]
  - Insomnia [None]
  - Abdominal pain upper [None]
  - Muscle spasms [None]
  - Pain in extremity [None]

NARRATIVE: CASE EVENT DATE: 20190110
